FAERS Safety Report 6919581-9 (Version None)
Quarter: 2010Q3

REPORT INFORMATION
  Report Type: 
  Country: None (occurrence: None)
  Receive Date: 20100809
  Receipt Date: 20100728
  Transmission Date: 20110219
  Serious: Yes (Hospitalization)
  Sender: FDA-Public Use
  Company Number: 2010JP001874

PATIENT
  Age: 77 Year
  Sex: Female
  Weight: 59.6 kg

DRUGS (8)
  1. VESICARE [Suspect]
     Indication: HYPERTONIC BLADDER
     Dosage: 5 MG, UID/QD, ORAL
     Route: 048
     Dates: start: 20100303, end: 20100317
  2. VESICARE [Suspect]
     Indication: MICTURITION URGENCY
     Dosage: 5 MG, UID/QD, ORAL
     Route: 048
     Dates: start: 20100303, end: 20100317
  3. LOSARTAN POTASSIUM AND HYDROCHLOROTHIAZIDE [Concomitant]
  4. LIPITOR (ATORVASTATIN CACLIUM) TABLET [Concomitant]
  5. STOGAR (LAFUTIDINE) TABLET [Concomitant]
  6. SENNOSIDE (SENNOSIDE A+B) PER ORAL NOS [Concomitant]
  7. BLOPRESS (CANDESARTAN CILEXETIL) TABLET [Concomitant]
  8. ALLOPURINOL [Concomitant]

REACTIONS (4)
  - DRUG LEVEL INCREASED [None]
  - DYSSTASIA [None]
  - HYPOTENSION [None]
  - RENAL FAILURE ACUTE [None]
